FAERS Safety Report 4832405-9 (Version None)
Quarter: 2005Q4

REPORT INFORMATION
  Report Type: 
  Country: None (occurrence: None)
  Receive Date: 20051121
  Receipt Date: 20051014
  Transmission Date: 20060501
  Serious: Yes (Hospitalization)
  Sender: FDA-Public Use
  Company Number: 2005AP05410

PATIENT
  Age: 77 Year
  Sex: Female
  Weight: 46 kg

DRUGS (2)
  1. ARIMIDEX [Suspect]
     Indication: BREAST CANCER
     Route: 048
     Dates: start: 20041117, end: 20050510
  2. NOLVADEX [Suspect]
     Indication: BREAST CANCER
     Route: 048
     Dates: start: 20050511, end: 20051010

REACTIONS (2)
  - CEREBRAL INFARCTION [None]
  - OEDEMA [None]
